FAERS Safety Report 8384106-0 (Version None)
Quarter: 2012Q2

REPORT INFORMATION
  Report Type: 
  Country: None (occurrence: None)
  Receive Date: 20120524
  Receipt Date: 20120522
  Transmission Date: 20120825
  Serious: Yes (Hospitalization)
  Sender: FDA-Public Use
  Company Number: FR-ROCHE-1071495

PATIENT
  Sex: Female

DRUGS (8)
  1. PREDNISOLONE [Suspect]
     Indication: BRONCHITIS
     Route: 048
     Dates: start: 20120417, end: 20120419
  2. PIASCLEDINE (FRANCE) [Concomitant]
     Route: 065
  3. TRAMADOL HCL [Suspect]
     Indication: PRODUCT USED FOR UNKNOWN INDICATION
     Route: 048
     Dates: end: 20120419
  4. ROCEPHIN [Suspect]
     Indication: BRONCHITIS
     Route: 030
     Dates: start: 20120417, end: 20120419
  5. NEXIUM [Suspect]
     Indication: PRODUCT USED FOR UNKNOWN INDICATION
     Route: 048
     Dates: end: 20120419
  6. LEVOTHYROXINE SODIUM [Concomitant]
     Route: 065
  7. BISOPROLOL FUMARATE AND HYDROCHLOROTHIAZIDE [Concomitant]
     Route: 065
  8. CACIT VITAMINE D3 [Concomitant]
     Route: 065

REACTIONS (2)
  - HALLUCINATION, VISUAL [None]
  - CONFUSIONAL STATE [None]
